FAERS Safety Report 12758796 (Version 1)
Quarter: 2016Q3

REPORT INFORMATION
  Report Type: Spontaneous
  Country: US (occurrence: US)
  Receive Date: 20160918
  Receipt Date: 20160918
  Transmission Date: 20161109
  Serious: No
  Sender: FDA-Public Use
  Company Number: None

PATIENT
  Age: 33 Year
  Sex: Female
  Weight: 69.75 kg

DRUGS (11)
  1. HYOSCYAMINE. [Suspect]
     Active Substance: HYOSCYAMINE
     Indication: COLITIS
     Route: 060
     Dates: start: 20120101, end: 20160916
  2. CELEXA [Concomitant]
     Active Substance: CITALOPRAM HYDROBROMIDE
  3. EXCEDRIN MIGRAINE [Concomitant]
     Active Substance: ACETAMINOPHEN\ASPIRIN\CAFFEINE
  4. LEVOTHYROXINE. [Concomitant]
     Active Substance: LEVOTHYROXINE
  5. CYCLOBENZAPRINE (FLEXERIL) [Concomitant]
  6. NAPROXEN. [Concomitant]
     Active Substance: NAPROXEN
  7. IBUPROFEN. [Concomitant]
     Active Substance: IBUPROFEN
  8. BIRTH CONTROL (PORTIA) [Concomitant]
  9. LANSOPRAZOLE (PREVACID) [Concomitant]
  10. XANAX [Concomitant]
     Active Substance: ALPRAZOLAM
  11. VITAMIN C [Concomitant]
     Active Substance: ASCORBIC ACID

REACTIONS (5)
  - Gastrointestinal pain [None]
  - Hot flush [None]
  - Condition aggravated [None]
  - Dry mouth [None]
  - Diarrhoea [None]

NARRATIVE: CASE EVENT DATE: 20120115
